FAERS Safety Report 7792332-4 (Version None)
Quarter: 2011Q4

REPORT INFORMATION
  Report Type: 
  Country: None (occurrence: None)
  Receive Date: 20111003
  Receipt Date: 20110928
  Transmission Date: 20120403
  Serious: Yes (Other)
  Sender: FDA-Public Use
  Company Number: US-SANOFI-AVENTIS-2011SA063866

PATIENT
  Age: 80 Year
  Sex: Female

DRUGS (1)
  1. MULTAQ [Suspect]
     Route: 065
     Dates: end: 20110101

REACTIONS (1)
  - PANCREATITIS [None]
